FAERS Safety Report 6204520-9 (Version None)
Quarter: 2009Q2

REPORT INFORMATION
  Report Type: 
  Country: None (occurrence: None)
  Receive Date: 20090527
  Receipt Date: 20090519
  Transmission Date: 20091009
  Serious: No
  Sender: FDA-Public Use
  Company Number: US-B.I. PHARMACEUTICALS,INC./RIDGEFIELD-2009-BP-06268BP

PATIENT
  Sex: Female

DRUGS (10)
  1. CATAPRES-TTS-1 [Suspect]
     Indication: HYPERTENSION
     Dosage: .1MG
     Route: 062
     Dates: start: 20090512, end: 20090515
  2. ATENOLOL [Concomitant]
     Indication: HYPERTENSION
  3. DIOVAN [Concomitant]
     Indication: HYPERTENSION
  4. PRAVASTATIN [Concomitant]
     Indication: BLOOD CHOLESTEROL INCREASED
     Dates: start: 20090514
  5. PANTOPRAZOLE SODIUM [Concomitant]
     Indication: GASTROOESOPHAGEAL REFLUX DISEASE
  6. AMBIEN CR [Concomitant]
  7. ASPIRIN [Concomitant]
  8. VAGIFEM [Concomitant]
  9. LACTULOSE [Concomitant]
     Indication: GASTROINTESTINAL MOTILITY DISORDER
  10. LACTULOSE [Concomitant]
     Indication: INTESTINAL OBSTRUCTION

REACTIONS (1)
  - APPLICATION SITE BURN [None]
